FAERS Safety Report 6314810-7 (Version None)
Quarter: 2009Q3

REPORT INFORMATION
  Report Type: 
  Country: None (occurrence: None)
  Receive Date: 20090817
  Receipt Date: 20090817
  Transmission Date: 20100115
  Serious: Yes (Other)
  Sender: FDA-Public Use
  Company Number: None

PATIENT
  Sex: Female
  Weight: 58.9676 kg

DRUGS (1)
  1. NEXIUM [Suspect]
     Indication: DYSPEPSIA
     Dosage: 40MG ONCE DAILY PO
     Route: 048
     Dates: start: 20020101, end: 20090813

REACTIONS (6)
  - BONE DENSITY DECREASED [None]
  - BREAST PAIN [None]
  - DIZZINESS [None]
  - FALL [None]
  - INJURY [None]
  - OEDEMA PERIPHERAL [None]
